FAERS Safety Report 9165291 (Version 1)
Quarter: 2013Q1

REPORT INFORMATION
  Report Type: Spontaneous
  Country: US (occurrence: None)
  Receive Date: 20130314
  Receipt Date: 20130314
  Transmission Date: 20140127
  Serious: Yes (Death)
  Sender: FDA-Public Use
  Company Number: None

PATIENT
  Age: 82 Year
  Sex: Female

DRUGS (9)
  1. LETAIRIS [Suspect]
     Indication: PULMONARY HYPERTENSION
     Route: 048
     Dates: start: 200710, end: 201303
  2. WARFARIN [Concomitant]
  3. SPIRONOLACTONE [Concomitant]
  4. DIGOXIN [Concomitant]
  5. SUPPLEMENTAL O2 [Concomitant]
  6. METFORMIN [Concomitant]
  7. GLIPIZIDE [Concomitant]
  8. SIMVASTATIN [Concomitant]
  9. LEVOTHYROXINE [Concomitant]

REACTIONS (3)
  - Hyponatraemia [None]
  - Aspiration [None]
  - Respiratory failure [None]
